FAERS Safety Report 9838749 (Version 1)
Quarter: 2014Q1

REPORT INFORMATION
  Report Type: Spontaneous
  Country: US (occurrence: None)
  Receive Date: 20140117
  Receipt Date: 20140117
  Transmission Date: 20141002
  Serious: Yes (Other)
  Sender: FDA-Public Use
  Company Number: None

PATIENT
  Age: 69 Year
  Sex: Female

DRUGS (1)
  1. HALAVEN [Suspect]
     Indication: BREAST CANCER
     Dosage: DAY 1+8 Q21D X 3 C
     Route: 042
     Dates: start: 20131011, end: 20131220

REACTIONS (1)
  - Pain in jaw [None]
